FAERS Safety Report 17325836 (Version 1)
Quarter: 2020Q1

REPORT INFORMATION
  Report Type: Spontaneous
  Country: ES (occurrence: ES)
  Receive Date: 20200127
  Receipt Date: 20200127
  Transmission Date: 20200409
  Serious: Yes (Hospitalization)
  Sender: FDA-Public Use
  Company Number: ES-MYLANLABS-2020M1008360

PATIENT
  Sex: Male
  Weight: 72.4 kg

DRUGS (13)
  1. LOSARTAN. [Suspect]
     Active Substance: LOSARTAN
     Indication: HYPERTENSION
     Dates: start: 20150119, end: 20191031
  2. NASONEX [Concomitant]
     Active Substance: MOMETASONE FUROATE
     Dosage: 4-0-0
     Dates: start: 20170719
  3. TERBASMIN                          /00199201/ [Concomitant]
     Dosage: 1-0-0
     Dates: start: 20180320
  4. ATENOLOL. [Concomitant]
     Active Substance: ATENOLOL
     Dosage: 1-0-0
     Route: 048
     Dates: start: 20080802
  5. ZALDIAR [Concomitant]
     Active Substance: ACETAMINOPHEN\TRAMADOL HYDROCHLORIDE
     Dosage: 1-1-1
     Dates: start: 20191011
  6. OMEPRAZOL                          /00661201/ [Concomitant]
     Active Substance: OMEPRAZOLE
     Dosage: 1-0-0
     Route: 048
     Dates: start: 20121018
  7. GEMFIBROZILO [Concomitant]
     Active Substance: GEMFIBROZIL
     Dosage: 0-0-1
     Route: 048
     Dates: start: 20070402
  8. ACFOL [Concomitant]
     Active Substance: FOLIC ACID
     Dosage: 1-0-0
     Dates: start: 20190219
  9. LORAZEPAM. [Concomitant]
     Active Substance: LORAZEPAM
     Dosage: 1-0-0
     Dates: start: 20190620
  10. IBUPROFEN. [Concomitant]
     Active Substance: IBUPROFEN
     Dosage: 1-0-0
     Dates: start: 20190613
  11. ATEZOLIZUMAB. [Suspect]
     Active Substance: ATEZOLIZUMAB
     Indication: LUNG NEOPLASM MALIGNANT
     Dosage: UNK
     Route: 042
     Dates: start: 20191017
  12. TOVANOR [Concomitant]
     Active Substance: GLYCOPYRROLATE
     Dosage: 1-0-0
     Dates: start: 20181114
  13. PARACETAMOL APOTEX [Concomitant]
     Dosage: 1-1-1-1
     Dates: start: 20190613

REACTIONS (2)
  - Condition aggravated [Recovering/Resolving]
  - Hyponatraemia [Recovering/Resolving]

NARRATIVE: CASE EVENT DATE: 20191031
